FAERS Safety Report 17942425 (Version 2)
Quarter: 2020Q2

REPORT INFORMATION
  Report Type: Spontaneous
  Country: CA (occurrence: CA)
  Receive Date: 20200625
  Receipt Date: 20200629
  Transmission Date: 20200714
  Serious: Yes (Other)
  Sender: FDA-Public Use
  Company Number: CA-ORION CORPORATION ORION PHARMA-20_00009511

PATIENT
  Age: 20 Year
  Sex: Female

DRUGS (19)
  1. METHOTREXATE (TRADE NAME UNKNOWN) [Suspect]
     Active Substance: METHOTREXATE
     Route: 048
  2. HUMIRA [Concomitant]
     Active Substance: ADALIMUMAB
     Dosage: 40 MG/0.8ML
     Route: 058
  3. HUMIRA [Concomitant]
     Active Substance: ADALIMUMAB
     Route: 058
     Dates: start: 2016
  4. REMICADE [Concomitant]
     Active Substance: INFLIXIMAB
     Route: 042
     Dates: end: 201809
  5. ADVIL [Concomitant]
     Active Substance: IBUPROFEN
     Dosage: 2 TABLET, DAILY PRN
     Route: 065
  6. METHOTREXATE (TRADE NAME UNKNOWN) [Suspect]
     Active Substance: METHOTREXATE
     Dosage: (20 MG./ 0.8 ML SYR)
     Route: 065
  7. MELOXICAM. [Concomitant]
     Active Substance: MELOXICAM
     Route: 048
  8. INFLIXIMAB HOSPIRA [Concomitant]
     Active Substance: INFLIXIMAB
     Route: 065
     Dates: start: 2017, end: 2018
  9. METHOTREXATE (TRADE NAME UNKNOWN) [Suspect]
     Active Substance: METHOTREXATE
     Dosage: 20 MG, WEEKLY (10MG ORAL TABLET 2 ONCE A WEEK)
     Route: 048
  10. ADVIL [Concomitant]
     Active Substance: IBUPROFEN
     Dosage: 1 TABLET DAILY PRN (AS NEEDED)
     Route: 065
  11. FOLIC ACID. [Concomitant]
     Active Substance: FOLIC ACID
     Route: 048
  12. PLAQUENIL S [Concomitant]
     Active Substance: HYDROXYCHLOROQUINE SULFATE
     Route: 065
     Dates: start: 2019
  13. ADALIMUMAB [Concomitant]
     Active Substance: ADALIMUMAB
     Route: 058
  14. METHOTREXATE (TRADE NAME UNKNOWN) [Suspect]
     Active Substance: METHOTREXATE
     Indication: JUVENILE IDIOPATHIC ARTHRITIS
     Route: 048
  15. AMITRIPTYLINE [Concomitant]
     Active Substance: AMITRIPTYLINE
     Route: 065
  16. METHOTREXATE (TRADE NAME UNKNOWN) [Suspect]
     Active Substance: METHOTREXATE
     Route: 048
  17. TYLENOL [Concomitant]
     Active Substance: ACETAMINOPHEN
     Indication: PAIN
     Dosage: (AS NEEDED)
     Route: 065
  18. METHOTREXATE (TRADE NAME UNKNOWN) [Suspect]
     Active Substance: METHOTREXATE
     Route: 048
  19. DEPO-MEDROL [Concomitant]
     Active Substance: METHYLPREDNISOLONE ACETATE
     Dosage: (80 MG/ML)
     Route: 065

REACTIONS (19)
  - Neuralgia [Unknown]
  - Haematocrit decreased [Unknown]
  - Rib fracture [Recovering/Resolving]
  - Depressed mood [Unknown]
  - Haemoglobin decreased [Unknown]
  - Weight increased [Unknown]
  - Heart rate increased [Recovered/Resolved]
  - Fatigue [Unknown]
  - Pain [Unknown]
  - Drug ineffective [Unknown]
  - Therapeutic product effect incomplete [Unknown]
  - Concussion [Recovering/Resolving]
  - Product use issue [Unknown]
  - Rheumatoid arthritis [Unknown]
  - Headache [Unknown]
  - Asthenia [Unknown]
  - Tenderness [Unknown]
  - White blood cell count decreased [Unknown]
  - Road traffic accident [Unknown]

NARRATIVE: CASE EVENT DATE: 20180821
